FAERS Safety Report 10129195 (Version 1)
Quarter: 2014Q2

REPORT INFORMATION
  Report Type: Spontaneous
  Country: US (occurrence: US)
  Receive Date: 20140428
  Receipt Date: 20140428
  Transmission Date: 20141212
  Serious: No
  Sender: FDA-Public Use
  Company Number: US-ABBVIE-14P-163-1203472-00

PATIENT
  Sex: Male
  Weight: 79.9 kg

DRUGS (3)
  1. ANDROGEL [Suspect]
     Indication: BLOOD TESTOSTERONE DECREASED
     Route: 061
     Dates: start: 201309
  2. ANDROGEL [Suspect]
     Dates: start: 2013, end: 201402
  3. ANDROGEL [Suspect]
     Dates: start: 20140217

REACTIONS (2)
  - Blood testosterone decreased [Recovered/Resolved]
  - Blood testosterone increased [Unknown]
